FAERS Safety Report 5025550-9 (Version None)
Quarter: 2006Q2

REPORT INFORMATION
  Report Type: 
  Country: None (occurrence: None)
  Receive Date: 20060426
  Receipt Date: 20060205
  Transmission Date: 20061013
  Serious: Yes (Other)
  Sender: FDA-Public Use
  Company Number: 2006018277

PATIENT
  Sex: Female
  Weight: 58.9676 kg

DRUGS (1)
  1. LYRICA [Suspect]
     Indication: PAIN
     Dosage: (150 MG)

REACTIONS (1)
  - DIZZINESS [None]
